FAERS Safety Report 12175106 (Version 1)
Quarter: 2016Q1

REPORT INFORMATION
  Report Type: Not Available
  Country: CN (occurrence: CN)
  Receive Date: 20160314
  Receipt Date: 20160314
  Transmission Date: 20160526
  Serious: Yes (Other)
  Sender: FDA-Public Use
  Company Number: CN-AKORN-26211

PATIENT
  Age: 63 Year
  Sex: Female

DRUGS (1)
  1. ZOLEDRONIC ACID 4 MG/5 ML (0.8 MG/ML) [Suspect]
     Active Substance: ZOLEDRONIC ACID

REACTIONS (2)
  - Uveitis [None]
  - Macular oedema [None]
